FAERS Safety Report 9611021 (Version 1)
Quarter: 2013Q4

REPORT INFORMATION
  Report Type: Spontaneous
  Country: FR (occurrence: FR)
  Receive Date: 20131009
  Receipt Date: 20131009
  Transmission Date: 20140711
  Serious: Yes (Hospitalization)
  Sender: FDA-Public Use
  Company Number: FR-GLAXOSMITHKLINE-B0926436A

PATIENT
  Sex: Male

DRUGS (1)
  1. ARIXTRA [Suspect]
     Indication: THROMBOSIS PROPHYLAXIS
     Dosage: 2.5MG SINGLE DOSE
     Route: 058
     Dates: start: 2013, end: 2013

REACTIONS (4)
  - Purpura [Unknown]
  - Pyrexia [Unknown]
  - Thrombocytopenia [Unknown]
  - Erysipelas [Unknown]
